FAERS Safety Report 10028298 (Version 1)
Quarter: 2014Q1

REPORT INFORMATION
  Report Type: Spontaneous
  Country: US (occurrence: None)
  Receive Date: 20140307
  Receipt Date: 20140307
  Transmission Date: 20141002
  Serious: Yes (Other)
  Sender: FDA-Public Use
  Company Number: 2013-US-003001

PATIENT
  Age: 18 Year
  Sex: Female
  Weight: 72.6 kg

DRUGS (4)
  1. XYREM [Suspect]
     Indication: NARCOLEPSY
     Route: 048
     Dates: start: 201304
  2. ADDERALL XR (AMFETAMINE ASPARTATE, AMFETAMINE SULFATE, DEXAMFETAMINE SACCHARATE, DEXAMFETAMINE SULFATE) [Concomitant]
  3. GLYCOPYRROLATE (GLYCOPYRRONIUM BROMIDE) [Concomitant]
  4. LAMICTAL (LAMITROGINE) [Concomitant]

REACTIONS (7)
  - Aortic aneurysm [None]
  - Tachycardia [None]
  - Loss of consciousness [None]
  - Hyperaesthesia [None]
  - Myalgia [None]
  - Abdominal pain [None]
  - Back pain [None]
